FAERS Safety Report 7421013-1 (Version None)
Quarter: 2011Q2

REPORT INFORMATION
  Report Type: 
  Country: None (occurrence: None)
  Receive Date: 20110418
  Receipt Date: 20110408
  Transmission Date: 20111010
  Serious: Yes (Other)
  Sender: FDA-Public Use
  Company Number: PHHY2011GB29191

PATIENT
  Age: 62 Year
  Sex: Female
  Weight: 76.204 kg

DRUGS (2)
  1. DOXYCYCLINE [Suspect]
     Dosage: UNK
     Dates: start: 20110329
  2. HORMONES [Concomitant]

REACTIONS (1)
  - ALOPECIA [None]
